FAERS Safety Report 9381345 (Version 1)
Quarter: 2013Q3

REPORT INFORMATION
  Report Type: Spontaneous
  Country: US (occurrence: US)
  Receive Date: 20130703
  Receipt Date: 20130703
  Transmission Date: 20140515
  Serious: Yes (Hospitalization, Other)
  Sender: FDA-Public Use
  Company Number: US-009507513-1306USA009479

PATIENT
  Sex: Female

DRUGS (2)
  1. REBETOL [Suspect]
     Indication: HEPATITIS C
     Dosage: UNK
     Route: 048
     Dates: start: 20050301, end: 20070301
  2. INTERFERON (UNSPECIFIED) [Suspect]
     Indication: HEPATITIS C
     Dosage: UNK
     Dates: start: 20050301, end: 20070301

REACTIONS (5)
  - Tooth extraction [Unknown]
  - Blood disorder [Unknown]
  - Thrombocytopenia [Unknown]
  - Tooth loss [Unknown]
  - Hepatitis C [Unknown]
